FAERS Safety Report 8933768 (Version 1)
Quarter: 2012Q4

REPORT INFORMATION
  Report Type: 
  Country: FR (occurrence: FR)
  Receive Date: 20121129
  Receipt Date: 20121129
  Transmission Date: 20130627
  Serious: Yes (Life-Threatening, Hospitalization, Disabling)
  Sender: FDA-Public Use
  Company Number: FR-SANOFI-AVENTIS-200911669GDDC

PATIENT
  Age: 34 Year
  Sex: Female

DRUGS (18)
  1. RIFATER [Suspect]
     Indication: TUBERCULOSIS
     Dosage: Dose as used: 4 DF
     Route: 065
     Dates: start: 20081114
  2. EMTRICITABINE/TENOFOVIR DISOPROXIL FUMARATE [Suspect]
     Indication: HIV INFECTION
     Dosage: Dose as used: 1 DF
     Route: 048
     Dates: start: 20081114
  3. SUSTIVA [Suspect]
     Indication: HIV INFECTION
     Dosage: Dose as used: 1 DF 
strength- 40 mg
     Route: 048
     Dates: start: 20081114
  4. SUSTIVA [Suspect]
     Indication: HIV INFECTION
     Route: 048
     Dates: start: 20081222
  5. SUSTIVA [Suspect]
     Indication: HIV INFECTION
     Dosage: dose was to be maintained at 600 mg/day that would be administered in day- hospital
     Route: 048
  6. FUZEON [Suspect]
     Indication: HIV INFECTION
     Dosage: Dose unit: 180 MG
     Route: 065
     Dates: start: 20081114
  7. MYAMBUTOL [Suspect]
     Indication: TUBERCULOSIS
     Dosage: Dose as used: 2 DF
     Route: 065
     Dates: start: 20081114
  8. SPECIAFOLDINE [Concomitant]
     Indication: ANEMIA
     Dosage: Dose as used: 1 DF
     Dates: start: 20081106
  9. BACTRIM [Concomitant]
     Indication: PROPHYLAXIS
     Dosage: Dose as used: 1 DF
     Route: 048
     Dates: start: 20081114
  10. PIRILENE [Concomitant]
     Route: 048
     Dates: start: 20090203, end: 20090325
  11. RIMIFON [Concomitant]
     Route: 042
     Dates: start: 20090203, end: 20090225
  12. RIFAMPICIN [Concomitant]
     Route: 042
     Dates: start: 20090203, end: 20090325
  13. PREDNISOLONE [Concomitant]
     Dates: start: 20081201
  14. RIFADINE [Concomitant]
     Route: 048
  15. SCOPODERM TTS [Concomitant]
     Indication: NEUROPATHY
  16. LAROXYL [Concomitant]
  17. DUROGESIC [Concomitant]
     Dosage: 1 in 3 D
  18. FORTIMEL [Concomitant]
     Route: 048

REACTIONS (4)
  - Tuberculosis [Unknown]
  - Impaired gastric emptying [Unknown]
  - Immune reconstitution inflammatory syndrome [Unknown]
  - Impaired gastric emptying [Recovering/Resolving]
